FAERS Safety Report 7257897-X (Version None)
Quarter: 2011Q1

REPORT INFORMATION
  Report Type: 
  Country: None (occurrence: None)
  Receive Date: 20110129
  Receipt Date: 20100503
  Transmission Date: 20110831
  Serious: No
  Sender: FDA-Public Use
  Company Number: US-ABBOTT-10P-163-0642633-00

PATIENT
  Age: 41 Year
  Sex: Male

DRUGS (2)
  1. OVER 15 MEDICATIONS [Concomitant]
     Indication: PRODUCT USED FOR UNKNOWN INDICATION
  2. HUMIRA [Suspect]
     Indication: PSORIASIS
     Dates: start: 20090501

REACTIONS (1)
  - INJECTION SITE HAEMATOMA [None]
